FAERS Safety Report 10239596 (Version 1)
Quarter: 2014Q2

REPORT INFORMATION
  Report Type: Spontaneous
  Country: JP (occurrence: JP)
  Receive Date: 20140616
  Receipt Date: 20140616
  Transmission Date: 20141212
  Serious: Yes (Other)
  Sender: FDA-Public Use
  Company Number: JP-NAPPMUNDI-GBR-2014-0018706

PATIENT
  Sex: Male

DRUGS (2)
  1. NORSPAN [Suspect]
     Indication: PAIN
     Dosage: 10 MCG, Q1H
     Route: 062
  2. NORSPAN [Suspect]
     Dosage: 5 MCG, Q1H
     Route: 062

REACTIONS (1)
  - Interstitial lung disease [Not Recovered/Not Resolved]
